FAERS Safety Report 11137748 (Version 1)
Quarter: 2015Q2

REPORT INFORMATION
  Report Type: Spontaneous
  Country: US (occurrence: US)
  Receive Date: 20150526
  Receipt Date: 20150526
  Transmission Date: 20150821
  Serious: No
  Sender: FDA-Public Use
  Company Number: US-MALLINCKRODT-T201500986

PATIENT
  Sex: Female

DRUGS (2)
  1. H.P. ACTHAR [Suspect]
     Active Substance: CORTICOTROPIN
     Indication: GLOMERULONEPHRITIS MEMBRANOUS
     Dosage: 80 UNITS, TWICE WKLY
     Route: 065
     Dates: start: 20141124
  2. H.P. ACTHAR [Suspect]
     Active Substance: CORTICOTROPIN
     Dosage: 40 UNITS, TWICE WKLY
     Route: 065

REACTIONS (10)
  - Musculoskeletal discomfort [Unknown]
  - Asthma [Unknown]
  - Abdominal distension [Unknown]
  - Arthralgia [Unknown]
  - Dry mouth [Not Recovered/Not Resolved]
  - Sleep disorder [Not Recovered/Not Resolved]
  - Balance disorder [Unknown]
  - Dry skin [Unknown]
  - Blood glucose fluctuation [Not Recovered/Not Resolved]
  - Blood pressure increased [Unknown]
